FAERS Safety Report 8336612-2 (Version None)
Quarter: 2012Q2

REPORT INFORMATION
  Report Type: 
  Country: None (occurrence: None)
  Receive Date: 20120504
  Receipt Date: 20120424
  Transmission Date: 20120825
  Serious: Yes (Hospitalization)
  Sender: FDA-Public Use
  Company Number: GB-PFIZER INC-2012092359

PATIENT
  Age: 74 Year
  Sex: Male

DRUGS (7)
  1. CIPROFLOXACIN [Concomitant]
     Dosage: 500 MG, UNK
     Route: 048
     Dates: start: 20120330, end: 20120406
  2. CISPLATIN [Suspect]
     Dosage: 140 MG, UNK
     Route: 042
     Dates: start: 20120404, end: 20120404
  3. SUTENT [Suspect]
     Indication: TRANSITIONAL CELL CARCINOMA
     Dosage: 25 MG, UNK
     Dates: start: 20120404, end: 20120408
  4. AMIODARONE HCL [Suspect]
     Dosage: 100 MG, UNK
     Route: 048
     Dates: start: 19920305
  5. TAMSULOSIN HCL [Suspect]
     Dosage: 400 MG, UNK
     Route: 048
     Dates: start: 20110404, end: 20120423
  6. GEMCITABINE [Concomitant]
     Dosage: 2000 MG, UNK
     Dates: start: 20120404, end: 20120404
  7. NITROFURANTOIN [Concomitant]
     Dosage: 100 MG, UNK
     Dates: start: 20120401, end: 20120408

REACTIONS (1)
  - HYPOTENSION [None]
